FAERS Safety Report 16928327 (Version 2)
Quarter: 2019Q4

REPORT INFORMATION
  Report Type: Spontaneous
  Country: JP (occurrence: JP)
  Receive Date: 20191017
  Receipt Date: 20191127
  Transmission Date: 20200122
  Serious: Yes (Hospitalization)
  Sender: FDA-Public Use
  Company Number: JP-TEVA-2019-JP-1124397

PATIENT
  Age: 84 Year
  Sex: Female

DRUGS (9)
  1. MADOPAR [Concomitant]
     Active Substance: BENSERAZIDE HYDROCHLORIDE\LEVODOPA
     Route: 065
  2. NOURIAST [Concomitant]
     Active Substance: ISTRADEFYLLINE
  3. NEUPRO [Concomitant]
     Active Substance: ROTIGOTINE
  4. DOPS [Concomitant]
     Active Substance: DROXIDOPA
  5. AZILECT [Suspect]
     Active Substance: RASAGILINE MESYLATE
     Indication: PARKINSON^S DISEASE
     Dosage: 1 MILLIGRAM DAILY;
     Route: 048
     Dates: start: 20190906
  6. COMTAN [Concomitant]
     Active Substance: ENTACAPONE
  7. MUCOSTA [Concomitant]
     Active Substance: REBAMIPIDE
  8. LOXONIN [Concomitant]
     Active Substance: LOXOPROFEN SODIUM
  9. TRERIEF [Concomitant]
     Active Substance: ZONISAMIDE

REACTIONS (1)
  - Gait disturbance [Unknown]

NARRATIVE: CASE EVENT DATE: 20190930
